FAERS Safety Report 21722486 (Version 1)
Quarter: 2022Q4

REPORT INFORMATION
  Report Type: Spontaneous
  Country: US (occurrence: None)
  Receive Date: 20221213
  Receipt Date: 20221213
  Transmission Date: 20230112
  Serious: Yes (Hospitalization)
  Sender: FDA-Public Use
  Company Number: US-FARMAPROD-202212-2517

PATIENT
  Sex: Male

DRUGS (8)
  1. OXERVATE [Suspect]
     Active Substance: CENEGERMIN-BKBJ
     Indication: Neurotrophic keratopathy
     Route: 047
     Dates: start: 20221102
  2. XIIDRA [Concomitant]
     Active Substance: LIFITEGRAST
  3. ACYCLOVIR [Concomitant]
     Active Substance: ACYCLOVIR
  4. FUROSEMIDE [Concomitant]
     Active Substance: FUROSEMIDE
  5. ALLOPURINOL [Concomitant]
     Active Substance: ALLOPURINOL
  6. XARELTO [Concomitant]
     Active Substance: RIVAROXABAN
  7. CARVEDILOL [Concomitant]
     Active Substance: CARVEDILOL
  8. JARDIANCE [Concomitant]
     Active Substance: EMPAGLIFLOZIN

REACTIONS (1)
  - Hospitalisation [Unknown]
